FAERS Safety Report 24142559 (Version 1)
Quarter: 2024Q3

REPORT INFORMATION
  Report Type: Spontaneous
  Country: EU (occurrence: EU)
  Receive Date: 20240726
  Receipt Date: 20240726
  Transmission Date: 20241016
  Serious: Yes (Hospitalization)
  Sender: SEPTODONT
  Company Number: None

PATIENT
  Weight: 58 kg

DRUGS (1)
  1. ARTICAINE\EPINEPHRINE [Suspect]
     Active Substance: ARTICAINE\EPINEPHRINE
     Indication: Anaesthesia
     Dosage: 1 TOTAL
     Route: 004
     Dates: start: 20240702, end: 20240702

REACTIONS (4)
  - Pyrexia [Recovering/Resolving]
  - Fatigue [Recovering/Resolving]
  - Urticaria [Recovering/Resolving]
  - Headache [Recovering/Resolving]

NARRATIVE: CASE EVENT DATE: 20240702
